FAERS Safety Report 7287098-0 (Version None)
Quarter: 2011Q1

REPORT INFORMATION
  Report Type: 
  Country: None (occurrence: None)
  Receive Date: 20110211
  Receipt Date: 20110131
  Transmission Date: 20110831
  Serious: Yes (Hospitalization)
  Sender: FDA-Public Use
  Company Number: US-BIOGENIDEC-2011BI002852

PATIENT
  Age: 55 Year
  Sex: Female
  Weight: 96 kg

DRUGS (2)
  1. AVONEX [Suspect]
     Indication: MULTIPLE SCLEROSIS
     Route: 030
  2. AVONEX [Suspect]
     Route: 030
     Dates: start: 20021217

REACTIONS (2)
  - MULTIPLE SCLEROSIS RELAPSE [None]
  - ANAEMIA [None]
